FAERS Safety Report 10165141 (Version 1)
Quarter: 2014Q2

REPORT INFORMATION
  Report Type: Spontaneous
  Country: US (occurrence: US)
  Receive Date: 20140510
  Receipt Date: 20140510
  Transmission Date: 20141212
  Serious: No
  Sender: FDA-Public Use
  Company Number: US-BRISTOL-MYERS SQUIBB COMPANY-20302576

PATIENT
  Age: 33 Year
  Sex: 0

DRUGS (2)
  1. BYDUREON [Suspect]
     Indication: DIABETES MELLITUS
  2. METFORMIN HCL [Concomitant]
     Indication: DIABETES MELLITUS

REACTIONS (2)
  - Injection site pain [Unknown]
  - Injection site swelling [Unknown]
